FAERS Safety Report 9376999 (Version 1)
Quarter: 2013Q3

REPORT INFORMATION
  Report Type: Spontaneous
  Country: US (occurrence: US)
  Receive Date: 20130701
  Receipt Date: 20130701
  Transmission Date: 20140515
  Serious: Yes (Disabling)
  Sender: FDA-Public Use
  Company Number: PHEH2013US013969

PATIENT
  Sex: 0

DRUGS (1)
  1. DIOVAN [Suspect]

REACTIONS (1)
  - Deafness [Unknown]
